FAERS Safety Report 5004773-9 (Version None)
Quarter: 2006Q2

REPORT INFORMATION
  Report Type: 
  Country: None (occurrence: None)
  Receive Date: 20060517
  Receipt Date: 20050831
  Transmission Date: 20061013
  Serious: Yes (Hospitalization)
  Sender: FDA-Public Use
  Company Number: US-MERCK-0509USA00211

PATIENT
  Sex: Female
  Weight: 62 kg

DRUGS (2)
  1. VIOXX [Suspect]
     Indication: RHEUMATOID ARTHRITIS
     Route: 048
     Dates: start: 19990827, end: 20010401
  2. VIOXX [Suspect]
     Route: 048
     Dates: start: 20010401, end: 20040930

REACTIONS (14)
  - ARTERIOSCLEROSIS [None]
  - BACK PAIN [None]
  - BLOOD SODIUM DECREASED [None]
  - CARDIAC FAILURE CONGESTIVE [None]
  - CEREBROVASCULAR ACCIDENT [None]
  - CHEST PAIN [None]
  - ELECTROLYTE IMBALANCE [None]
  - KYPHOSIS [None]
  - MYOCARDIAL INFARCTION [None]
  - OSTEOPOROSIS [None]
  - PULMONARY EMBOLISM [None]
  - PULMONARY FIBROSIS [None]
  - RESTRICTIVE PULMONARY DISEASE [None]
  - SHOULDER PAIN [None]
